FAERS Safety Report 23396486 (Version 1)
Quarter: 2024Q1

REPORT INFORMATION
  Report Type: Spontaneous
  Country: BR (occurrence: BR)
  Receive Date: 20240112
  Receipt Date: 20240112
  Transmission Date: 20240409
  Serious: Yes (Other)
  Sender: FDA-Public Use
  Company Number: BR-002147023-NVSC2024BR006559

PATIENT
  Sex: Female

DRUGS (3)
  1. CYCLOSPORINE [Suspect]
     Active Substance: CYCLOSPORINE
     Indication: Renal disorder
     Dosage: 100 MG, BID
     Route: 065
  2. CYCLOSPORINE [Suspect]
     Active Substance: CYCLOSPORINE
     Dosage: 200 MG, QD
     Route: 065
  3. CYCLOSPORINE [Suspect]
     Active Substance: CYCLOSPORINE
     Dosage: 100 MG, QD
     Route: 065

REACTIONS (11)
  - Dementia Alzheimer^s type [Not Recovered/Not Resolved]
  - Dementia [Not Recovered/Not Resolved]
  - Dizziness [Recovered/Resolved]
  - Malaise [Recovered/Resolved]
  - Labyrinthitis [Recovered/Resolved]
  - Hair texture abnormal [Not Recovered/Not Resolved]
  - Hunger [Not Recovered/Not Resolved]
  - Amnesia [Not Recovered/Not Resolved]
  - Abnormal dreams [Unknown]
  - Weight increased [Not Recovered/Not Resolved]
  - Inappropriate schedule of product administration [Unknown]
